FAERS Safety Report 12341794 (Version 1)
Quarter: 2016Q2

REPORT INFORMATION
  Report Type: Spontaneous
  Country: US (occurrence: None)
  Receive Date: 20160505
  Receipt Date: 20160505
  Transmission Date: 20160815
  Serious: Yes (Hospitalization)
  Sender: FDA-Public Use
  Company Number: None

PATIENT
  Age: 46 Year
  Sex: Female
  Weight: 79.5 kg

DRUGS (6)
  1. SUPER PROBIOTIC [Concomitant]
  2. RETIN-A [Concomitant]
     Active Substance: TRETINOIN
  3. PASIREOTIDE [Suspect]
     Active Substance: PASIREOTIDE
     Route: 030
     Dates: start: 20140205, end: 20160425
  4. MULTIVITAMIN [Concomitant]
     Active Substance: VITAMINS
  5. BISACODYL (DULCOLAX) [Concomitant]
  6. LISINOPRIL. [Concomitant]
     Active Substance: LISINOPRIL

REACTIONS (4)
  - Night sweats [None]
  - Pain [None]
  - Pyrexia [None]
  - Chills [None]

NARRATIVE: CASE EVENT DATE: 20160504
